FAERS Safety Report 6822383-5 (Version None)
Quarter: 2010Q3

REPORT INFORMATION
  Report Type: 
  Country: None (occurrence: None)
  Receive Date: 20100708
  Receipt Date: 20100702
  Transmission Date: 20110219
  Serious: Yes (Hospitalization)
  Sender: FDA-Public Use
  Company Number: FR-ASTRAZENECA-2009SE03629

PATIENT
  Age: 47 Year
  Sex: Female

DRUGS (3)
  1. NEXIUM [Suspect]
     Route: 048
     Dates: start: 20090501, end: 20090601
  2. ENDOXAN [Suspect]
     Route: 042
     Dates: start: 20090501
  3. BACTRIM [Suspect]
     Route: 048
     Dates: start: 20090501, end: 20090601

REACTIONS (3)
  - HAEMOLYTIC ANAEMIA [None]
  - MICROANGIOPATHIC HAEMOLYTIC ANAEMIA [None]
  - THROMBOCYTOPENIA [None]
